FAERS Safety Report 5536945-9 (Version None)
Quarter: 2007Q4

REPORT INFORMATION
  Report Type: 
  Country: None (occurrence: None)
  Receive Date: 20071207
  Receipt Date: 20071129
  Transmission Date: 20080405
  Serious: Yes (Other)
  Sender: FDA-Public Use
  Company Number: PHBS2007BR20212

PATIENT
  Sex: Male

DRUGS (1)
  1. APRESOLINE [Suspect]
     Indication: HYPERTENSION
     Dosage: 150 MG/DAY
     Route: 048

REACTIONS (4)
  - CONSTIPATION [None]
  - ERYTHEMA [None]
  - FATIGUE [None]
  - SURGERY [None]
